FAERS Safety Report 9125635 (Version 3)
Quarter: 2013Q1

REPORT INFORMATION
  Report Type: Spontaneous
  Country: US (occurrence: US)
  Receive Date: 20130121
  Receipt Date: 20130325
  Transmission Date: 20140127
  Serious: Yes (Other)
  Sender: FDA-Public Use
  Company Number: US-FRI-1000041632

PATIENT
  Sex: Female

DRUGS (11)
  1. VIIBRYD [Suspect]
     Indication: DEPRESSION
     Dosage: 10MG
     Route: 048
     Dates: start: 2012, end: 2012
  2. VIIBRYD [Suspect]
     Indication: BIPOLAR DISORDER
     Dosage: 20MG
     Route: 048
     Dates: start: 2012, end: 2012
  3. LAMICTAL [Suspect]
     Indication: DEPRESSION
     Dosage: 100MG
  4. COCAINE [Suspect]
  5. SEROQUEL XR [Concomitant]
     Indication: AFFECTIVE DISORDER
     Dosage: 600MG
  6. SEROQUEL [Concomitant]
     Indication: AFFECTIVE DISORDER
     Dosage: 200MG
  7. ABILIFY [Concomitant]
     Indication: MOOD ALTERED
     Dosage: 5MG
  8. ELAVIL [Concomitant]
     Indication: NEURALGIA
     Dosage: 150MG
  9. CLONAZEPAM [Concomitant]
     Indication: PANIC DISORDER
     Dosage: 2MG
  10. TEMAZEPAM [Concomitant]
     Indication: INSOMNIA
     Dosage: 45MG
  11. PRAZOSIN [Concomitant]
     Indication: NIGHTMARE
     Dosage: 1MG

REACTIONS (3)
  - Paralysis [Unknown]
  - Toxicity to various agents [Recovered/Resolved]
  - Drug screen positive [Recovered/Resolved]
